FAERS Safety Report 5781103-6 (Version None)
Quarter: 2008Q2

REPORT INFORMATION
  Report Type: 
  Country: None (occurrence: None)
  Receive Date: 20080620
  Receipt Date: 20080610
  Transmission Date: 20081010
  Serious: Yes (Other)
  Sender: FDA-Public Use
  Company Number: US-PFIZER INC-2008049890

PATIENT
  Sex: Female
  Weight: 71.2 kg

DRUGS (4)
  1. LYRICA [Suspect]
     Indication: FIBROMYALGIA
     Dates: start: 20080401, end: 20080606
  2. MONTELUKAST SODIUM [Concomitant]
     Indication: ASTHMA
  3. ADVAIR DISKUS 100/50 [Concomitant]
  4. VERAPAMIL [Concomitant]
     Indication: HYPERTENSION

REACTIONS (3)
  - ASTHMA [None]
  - DYSPNOEA [None]
  - WEIGHT INCREASED [None]
